FAERS Safety Report 16776470 (Version 1)
Quarter: 2019Q3

REPORT INFORMATION
  Report Type: Spontaneous
  Country: US (occurrence: US)
  Receive Date: 20190905
  Receipt Date: 20190905
  Transmission Date: 20191005
  Serious: No
  Sender: FDA-Public Use
  Company Number: US-BAYER-2019-157907

PATIENT
  Age: 16 Year
  Sex: Male

DRUGS (1)
  1. KOGENATE FS [Suspect]
     Active Substance: ANTIHEMOPHILIC FACTOR, HUMAN RECOMBINANT
     Indication: HAEMOPHILIA
     Dosage: PROPHYLACTIC THERAPY

REACTIONS (2)
  - Recalled product administered [Not Recovered/Not Resolved]
  - Recalled product [Not Recovered/Not Resolved]

NARRATIVE: CASE EVENT DATE: 2019
